APPROVED DRUG PRODUCT: OXYCODONE AND ACETAMINOPHEN
Active Ingredient: ACETAMINOPHEN; OXYCODONE HYDROCHLORIDE
Strength: 650MG;10MG
Dosage Form/Route: TABLET;ORAL
Application: A090177 | Product #006
Applicant: DR REDDYS LABORATORIES SA
Approved: Oct 20, 2008 | RLD: No | RS: No | Type: DISCN